FAERS Safety Report 5571155-0 (Version None)
Quarter: 2007Q4

REPORT INFORMATION
  Report Type: 
  Country: None (occurrence: None)
  Receive Date: 20071221
  Receipt Date: 20061122
  Transmission Date: 20080405
  Serious: No
  Sender: FDA-Public Use
  Company Number: A0628485A

PATIENT
  Sex: Male

DRUGS (3)
  1. FLONASE [Suspect]
     Indication: METABOLIC DISORDER
     Route: 045
  2. FLUTICASONE PROPIONATE [Suspect]
     Indication: METABOLIC DISORDER
     Dosage: 1SPR PER DAY
     Route: 045
  3. NASACORT [Concomitant]

REACTIONS (2)
  - AGEUSIA [None]
  - HYPERTENSION [None]
